FAERS Safety Report 8879480 (Version 3)
Quarter: 2012Q4

REPORT INFORMATION
  Report Type: 
  Country: US (occurrence: US)
  Receive Date: 20121101
  Receipt Date: 20121221
  Transmission Date: 20130627
  Serious: Yes (Other)
  Sender: FDA-Public Use
  Company Number: US-AMGEN-USASP2012062743

PATIENT
  Age: 6 Year
  Sex: Male
  Weight: 24 kg

DRUGS (10)
  1. NPLATE [Suspect]
     Indication: IDIOPATHIC THROMBOCYTOPENIC PURPURA
     Dosage: 10 mug/kg, qwk
     Route: 058
     Dates: start: 20120612
  2. MERCAPTOPURINE [Concomitant]
     Indication: IDIOPATHIC THROMBOCYTOPENIC PURPURA
     Dosage: 75 mg/m2, qd
     Route: 048
     Dates: start: 201201
  3. PREVACID [Concomitant]
     Indication: GASTROOESOPHAGEAL REFLUX DISEASE
     Dosage: 15 mg, qd
     Route: 048
  4. BACTRIM [Concomitant]
     Dosage: UNK UNK, bid
     Route: 048
  5. RITUXIMAB [Concomitant]
  6. IMMUNOGLOBULIN I.V [Concomitant]
  7. PREDNISONE [Concomitant]
  8. CYCLOPHOSPHAMIDE [Concomitant]
  9. WINRHO [Concomitant]
  10. SOLUMEDROL [Concomitant]

REACTIONS (2)
  - Therapeutic response decreased [Unknown]
  - Platelet count decreased [Not Recovered/Not Resolved]
